FAERS Safety Report 5902219-7 (Version None)
Quarter: 2008Q3

REPORT INFORMATION
  Report Type: 
  Country: None (occurrence: None)
  Receive Date: 20080919
  Receipt Date: 20080801
  Transmission Date: 20090109
  Serious: No
  Sender: FDA-Public Use
  Company Number: US-WYE-H05359208

PATIENT
  Age: 40 Year
  Sex: Female

DRUGS (3)
  1. PRISTIQ [Suspect]
     Indication: DEPRESSION
     Dosage: 50 MG 1X PER 1 DAY
     Dates: start: 20080724, end: 20080731
  2. IBUPROFEN [Concomitant]
  3. SUBOXONE [Concomitant]

REACTIONS (3)
  - OEDEMA PERIPHERAL [None]
  - PERIPHERAL COLDNESS [None]
  - VISION BLURRED [None]
